FAERS Safety Report 7574483-2 (Version None)
Quarter: 2011Q2

REPORT INFORMATION
  Report Type: 
  Country: None (occurrence: None)
  Receive Date: 20110627
  Receipt Date: 20110607
  Transmission Date: 20111010
  Serious: Yes (Hospitalization)
  Sender: FDA-Public Use
  Company Number: US-BAYER-2011-024389

PATIENT
  Age: 27 Year
  Sex: Female
  Weight: 102.49 kg

DRUGS (4)
  1. BACTRIM DS [Concomitant]
     Dosage: UNK
     Dates: start: 20040319
  2. LOPRESSOR [Concomitant]
     Indication: HYPERTENSION
     Dosage: UNK
     Dates: start: 20040423
  3. FLAGYL [Concomitant]
     Dosage: 500 MG, BID
     Dates: start: 20040319
  4. YASMIN [Suspect]
     Indication: CONTRACEPTION
     Dosage: UNK
     Route: 048
     Dates: start: 20030101, end: 20040401

REACTIONS (2)
  - DEEP VEIN THROMBOSIS [None]
  - PULMONARY EMBOLISM [None]
